FAERS Safety Report 7671036-2 (Version None)
Quarter: 2011Q3

REPORT INFORMATION
  Report Type: 
  Country: None (occurrence: None)
  Receive Date: 20110805
  Receipt Date: 20110805
  Transmission Date: 20111222
  Serious: No
  Sender: FDA-Public Use
  Company Number: None

PATIENT
  Age: 54 Year
  Sex: Male

DRUGS (1)
  1. XIAFLEX [Suspect]
     Indication: DUPUYTREN'S CONTRACTURE
     Dosage: 0.900 MG EVERY 4 WEEK
     Dates: start: 20110422

REACTIONS (2)
  - MUSCULOSKELETAL PAIN [None]
  - AXILLARY PAIN [None]
